FAERS Safety Report 4313007-X (Version None)
Quarter: 2004Q1

REPORT INFORMATION
  Report Type: 
  Country: None (occurrence: None)
  Receive Date: 20040308
  Receipt Date: 20031209
  Transmission Date: 20041129
  Serious: Yes (Death)
  Sender: FDA-Public Use
  Company Number: US-BRISTOL-MYERS SQUIBB COMPANY-12454146

PATIENT
  Age: 74 Year
  Sex: Male

DRUGS (11)
  1. ENKAID [Suspect]
     Indication: ARRHYTHMIA
     Route: 048
     Dates: start: 19881001, end: 20031001
  2. TRAZODONE HCL [Concomitant]
  3. LANOXIN [Concomitant]
  4. ASPIRIN [Concomitant]
  5. COZAAR [Concomitant]
  6. ADVIL [Concomitant]
  7. PLAVIX [Concomitant]
  8. FINASTERIDE [Concomitant]
  9. ZOCOR [Concomitant]
  10. COUMADIN [Concomitant]
  11. TERAZOSIN HCL [Concomitant]

REACTIONS (4)
  - CONGESTIVE CARDIOMYOPATHY [None]
  - GANGRENE [None]
  - ISCHAEMIC CARDIOMYOPATHY [None]
  - MULTI-ORGAN FAILURE [None]
